FAERS Safety Report 4929839-0 (Version None)
Quarter: 2006Q1

REPORT INFORMATION
  Report Type: 
  Country: None (occurrence: None)
  Receive Date: 20060301
  Receipt Date: 20060207
  Transmission Date: 20060701
  Serious: Yes (Death, Hospitalization, Other)
  Sender: FDA-Public Use
  Company Number: DE-MERCK-0602DEU00036

PATIENT
  Age: 83 Year
  Sex: Female

DRUGS (6)
  1. FOSAMAX [Suspect]
     Indication: OSTEOPOROSIS
     Route: 048
     Dates: start: 20020101, end: 20060121
  2. LISINOPRIL [Concomitant]
     Route: 048
     Dates: end: 20060122
  3. HYDROCHLOROTHIAZIDE [Concomitant]
     Route: 048
     Dates: end: 20060122
  4. DIURETIC (UNSPECIFIED) [Concomitant]
     Route: 048
     Dates: start: 20051201, end: 20060122
  5. [THERAPY UNSPECIFIED] [Concomitant]
     Route: 048
     Dates: start: 20051201, end: 20060122
  6. CALCIUM (UNSPECIFIED) AND VITAMIN D (UNSPECIFIED) [Concomitant]
     Route: 048
     Dates: end: 20060122

REACTIONS (9)
  - CHEST PAIN [None]
  - CYANOSIS [None]
  - DEATH [None]
  - DRUG ADMINISTRATION ERROR [None]
  - DYSPHAGIA [None]
  - DYSPNOEA [None]
  - EMBOLISM [None]
  - FALL [None]
  - THROMBOSIS [None]
